FAERS Safety Report 25102877 (Version 1)
Quarter: 2025Q1

REPORT INFORMATION
  Report Type: Spontaneous
  Country: US (occurrence: US)
  Receive Date: 20250321
  Receipt Date: 20250321
  Transmission Date: 20250409
  Serious: Yes (Other)
  Sender: Steriscience PTE
  Company Number: US-STERISCIENCE B.V.-2025-ST-000509

PATIENT
  Age: 21 Year
  Sex: Female

DRUGS (4)
  1. BUPIVACAINE [Suspect]
     Active Substance: BUPIVACAINE
     Indication: Epidural analgesia
     Route: 008
  2. LIDOCAINE HYDROCHLORIDE AND EPINEPHRINE BITARTRATE [Suspect]
     Active Substance: EPINEPHRINE BITARTRATE\LIDOCAINE HYDROCHLORIDE
     Indication: Epidural test dose
     Route: 008
  3. BUPIVACAINE\FENTANYL [Suspect]
     Active Substance: BUPIVACAINE\FENTANYL
     Indication: Epidural analgesia
     Dosage: 8 MILLILITER, QH
     Route: 008
  4. LIDOCAINE [Suspect]
     Active Substance: LIDOCAINE
     Indication: Epidural anaesthesia
     Route: 008

REACTIONS (2)
  - Horner^s syndrome [None]
  - Maternal exposure during delivery [Unknown]
